FAERS Safety Report 8951610 (Version 2)
Quarter: 2012Q4

REPORT INFORMATION
  Report Type: 
  Country: US (occurrence: US)
  Receive Date: 20121204
  Receipt Date: 20121206
  Transmission Date: 20130627
  Serious: No
  Sender: FDA-Public Use
  Company Number: US-009507513-1211USA011576

PATIENT
  Age: 28 Year
  Sex: Female

DRUGS (6)
  1. PREDNISONE [Suspect]
     Indication: ASTHMA
     Dosage: 60 mg, UNK
     Route: 048
  2. PREDNISONE [Suspect]
     Dosage: UNK
     Route: 048
  3. METHYLPREDNISOLONE SODIUM SUCCINATE [Suspect]
     Dosage: UNK
     Route: 048
     Dates: start: 201203
  4. FLUTICASONE [Suspect]
     Route: 055
  5. BUDESONIDE (+) FORMOTEROL FUMARATE [Suspect]
     Route: 055
  6. ASPIRIN [Suspect]
     Indication: IMMUNE TOLERANCE INDUCTION

REACTIONS (1)
  - Urticaria [Unknown]
